FAERS Safety Report 7664931-1 (Version None)
Quarter: 2011Q3

REPORT INFORMATION
  Report Type: 
  Country: None (occurrence: None)
  Receive Date: 20110806
  Receipt Date: 20110307
  Transmission Date: 20111222
  Serious: No
  Sender: FDA-Public Use
  Company Number: US-ABBOTT-10P-163-0684415-00

PATIENT
  Sex: Male
  Weight: 145.28 kg

DRUGS (17)
  1. NIASPAN [Suspect]
     Route: 048
     Dates: start: 20101101
  2. NEXIUM [Concomitant]
     Indication: PRODUCT USED FOR UNKNOWN INDICATION
     Route: 048
  3. RED YEAST RICE [Concomitant]
     Indication: MEDICAL DIET
     Route: 048
  4. NIASPAN [Suspect]
     Dates: start: 20101001, end: 20101101
  5. NIASPAN [Suspect]
     Dates: start: 20101001, end: 20101001
  6. ASPIRIN [Concomitant]
     Indication: CARDIAC DISORDER
     Route: 048
  7. NIASPAN [Suspect]
     Indication: BLOOD CHOLESTEROL INCREASED
     Dates: start: 20101101
  8. NIASPAN [Suspect]
     Indication: HIGH DENSITY LIPOPROTEIN DECREASED
  9. NIASPAN [Suspect]
     Dosage: 500 MG IN AM, 500MG W/750MG IN PM
     Dates: start: 20101201
  10. FISH OIL [Concomitant]
     Indication: PRODUCT USED FOR UNKNOWN INDICATION
     Route: 048
  11. DETROL [Concomitant]
     Indication: PRODUCT USED FOR UNKNOWN INDICATION
     Route: 048
  12. HUMALOG PEN [Concomitant]
     Indication: DIABETES MELLITUS
     Dosage: PER SLIDING SCALE
  13. RELAFEN [Concomitant]
     Indication: ARTHRITIS
     Route: 048
  14. SIMVASTATIN [Concomitant]
     Indication: BLOOD CHOLESTEROL INCREASED
     Route: 048
  15. FUROSEMIDE [Concomitant]
     Indication: CARDIAC DISORDER
     Route: 048
  16. DIOVAN [Concomitant]
     Indication: CARDIAC DISORDER
     Route: 048
  17. REGULAR INSULIN [Concomitant]
     Indication: DIABETES MELLITUS
     Dosage: U-500
     Route: 058

REACTIONS (7)
  - BLOOD GLUCOSE INCREASED [None]
  - FLUSHING [None]
  - PARAESTHESIA [None]
  - POOR QUALITY SLEEP [None]
  - BURNING SENSATION [None]
  - PRURITUS [None]
  - CARDIAC FLUTTER [None]
